FAERS Safety Report 6424785-8 (Version None)
Quarter: 2009Q4

REPORT INFORMATION
  Report Type: 
  Country: None (occurrence: None)
  Receive Date: 20091103
  Receipt Date: 20091023
  Transmission Date: 20100525
  Serious: Yes (Other)
  Sender: FDA-Public Use
  Company Number: US-JNJFOC-20091008437

PATIENT
  Sex: Female
  Weight: 64.86 kg

DRUGS (2)
  1. REMICADE [Suspect]
     Route: 042
     Dates: start: 20091008, end: 20091022
  2. REMICADE [Suspect]
     Indication: RHEUMATOID ARTHRITIS
     Route: 042
     Dates: start: 20091008, end: 20091022

REACTIONS (5)
  - DYSPNOEA [None]
  - INFUSION RELATED REACTION [None]
  - PAIN [None]
  - PARALYSIS [None]
  - URTICARIA [None]
